FAERS Safety Report 8831776 (Version 1)
Quarter: 2012Q4

REPORT INFORMATION
  Report Type: 
  Country: US (occurrence: US)
  Receive Date: 20121009
  Receipt Date: 20121009
  Transmission Date: 20130627
  Serious: Yes (Other)
  Sender: FDA-Public Use
  Company Number: US-PFIZER INC-2012249665

PATIENT
  Age: 90 Year
  Sex: Male
  Weight: 104 kg

DRUGS (5)
  1. CELEBREX [Suspect]
     Indication: ARTHRALGIA
     Dosage: 200 mg, 2x/day
     Route: 048
     Dates: start: 2010, end: 2010
  2. ALLOPURINOL [Concomitant]
     Indication: NEPHROLITHIASIS
     Dosage: 100 mg, 2x/day
  3. LIPITOR [Concomitant]
     Dosage: 10 mg, 1x/day
  4. OMEPRAZOLE [Concomitant]
     Dosage: 20 mg, 1x/day
  5. WARFARIN [Concomitant]
     Dosage: 5 mg, 1x/day

REACTIONS (1)
  - Kidney infection [Recovered/Resolved]
